FAERS Safety Report 7179250-X (Version None)
Quarter: 2010Q4

REPORT INFORMATION
  Report Type: 
  Country: None (occurrence: None)
  Receive Date: 20101221
  Receipt Date: 20101216
  Transmission Date: 20110411
  Serious: No
  Sender: FDA-Public Use
  Company Number: US-TEVA-260293USA

PATIENT
  Sex: Female

DRUGS (11)
  1. COPAXONE [Suspect]
     Indication: MULTIPLE SCLEROSIS
     Route: 058
     Dates: start: 20101012
  2. MORPHINE [Concomitant]
  3. ESTROGEN NOS [Concomitant]
  4. LEVOTHYROXINE [Concomitant]
  5. CICLOSPORIN EYE DROPS [Concomitant]
  6. OXYBUTYNIN HYDROCHLORIDE [Concomitant]
  7. TRIAMTERENE [Concomitant]
  8. AMITRIPTYLINE [Concomitant]
  9. PANTOPRAZOLE [Concomitant]
  10. PREGABALIN [Concomitant]
  11. CLONAZEPAM [Concomitant]

REACTIONS (1)
  - NAIL DISORDER [None]
